FAERS Safety Report 11782790 (Version 1)
Quarter: 2015Q4

REPORT INFORMATION
  Report Type: Report from Study
  Country: US (occurrence: US)
  Receive Date: 20151127
  Receipt Date: 20151127
  Transmission Date: 20160305
  Serious: Yes (Hospitalization)
  Sender: FDA-Public Use
  Company Number: US-BIOGENIDEC-2015BI153162

PATIENT
  Sex: Male

DRUGS (12)
  1. MODAFINIL. [Concomitant]
     Active Substance: MODAFINIL
  2. ALENDRONATE [Concomitant]
     Active Substance: ALENDRONATE SODIUM
  3. PRIMIDONE. [Concomitant]
     Active Substance: PRIMIDONE
  4. SERTRALINE [Concomitant]
     Active Substance: SERTRALINE HYDROCHLORIDE
  5. DONEPEZIL. [Concomitant]
     Active Substance: DONEPEZIL
  6. AVONEX [Suspect]
     Active Substance: INTERFERON BETA-1A
     Indication: MULTIPLE SCLEROSIS
     Route: 030
     Dates: start: 20100327
  7. VESICARE [Concomitant]
     Active Substance: SOLIFENACIN SUCCINATE
  8. CLONAZEPAM. [Concomitant]
     Active Substance: CLONAZEPAM
  9. MEMANTINE. [Concomitant]
     Active Substance: MEMANTINE
  10. PROPRANOLOL [Concomitant]
     Active Substance: PROPRANOLOL\PROPRANOLOL HYDROCHLORIDE
  11. AMPYRA [Concomitant]
     Active Substance: DALFAMPRIDINE
  12. NAPR (NOS) [Concomitant]

REACTIONS (3)
  - Asthenia [Recovered/Resolved]
  - Fall [Recovered/Resolved]
  - Viral upper respiratory tract infection [Recovered/Resolved]
